FAERS Safety Report 10246192 (Version 1)
Quarter: 2014Q2

REPORT INFORMATION
  Report Type: Spontaneous
  Country: US (occurrence: US)
  Receive Date: 20140619
  Receipt Date: 20140619
  Transmission Date: 20141212
  Serious: No
  Sender: FDA-Public Use
  Company Number: US-B.I. PHARMACEUTICALS,INC./RIDGEFIELD-2014-BI-26228BP

PATIENT
  Sex: Female

DRUGS (7)
  1. SPIRIVA [Suspect]
     Indication: CHRONIC OBSTRUCTIVE PULMONARY DISEASE
     Dosage: 18 MCG
     Route: 055
     Dates: start: 2013, end: 201404
  2. SYMBICORT [Concomitant]
     Route: 055
     Dates: start: 2010
  3. ALBUTEROL NEBULIZER [Concomitant]
     Route: 055
     Dates: start: 2009
  4. ALBUTEROL INHALER [Concomitant]
     Indication: ASTHMA
     Route: 055
  5. CLARITIN [Concomitant]
     Route: 048
  6. FIORICET [Concomitant]
     Indication: HEADACHE
     Route: 048
     Dates: start: 2012
  7. DICLOFENAC [Concomitant]
     Indication: CARPAL TUNNEL SYNDROME
     Route: 048

REACTIONS (3)
  - Nasal congestion [Recovered/Resolved]
  - Cough [Recovered/Resolved]
  - Oropharyngeal pain [Recovered/Resolved]
